FAERS Safety Report 24624552 (Version 1)
Quarter: 2024Q4

REPORT INFORMATION
  Report Type: Spontaneous
  Country: US (occurrence: US)
  Receive Date: 20241115
  Receipt Date: 20241115
  Transmission Date: 20250114
  Serious: No
  Sender: FRESENIUS MEDICAL CARE
  Company Number: US-FMCRTG-FMC-2410-001269

PATIENT
  Age: 53 Year
  Sex: Male
  Weight: 81 kg

DRUGS (1)
  1. DELFLEX WITH DEXTROSE 2.5% LOW MAGNESIUM LOW CALCIUM [Suspect]
     Active Substance: CALCIUM CHLORIDE\DEXTROSE\MAGNESIUM CHLORIDE\SODIUM CHLORIDE\SODIUM LACTATE
     Indication: End stage renal disease
     Dosage: 2.5% DELFLEX AT 2500 ML FOR 4 CYCLES WITH NO LAST FILL AND NO DAYTIME EXCHANGE; PERTINENT PAST MEDIC
     Route: 033

REACTIONS (2)
  - Abdominal distension [Recovered/Resolved]
  - Treatment noncompliance [Unknown]
